FAERS Safety Report 26138701 (Version 1)
Quarter: 2025Q4

REPORT INFORMATION
  Report Type: Spontaneous
  Country: US (occurrence: US)
  Receive Date: 20251210
  Receipt Date: 20251210
  Transmission Date: 20260118
  Serious: Yes (Other)
  Sender: QILU PHARMACEUTICAL
  Company Number: US-QILU PHARMACEUTICAL CO.LTD.-QLU-000233-2020

PATIENT
  Age: 66 Year
  Sex: Male

DRUGS (6)
  1. OXALIPLATIN [Suspect]
     Active Substance: OXALIPLATIN
     Indication: Bladder adenocarcinoma stage unspecified
     Dosage: 70 MILLIGRAM/SQ. METER (AFTER 8 CYCLES)
     Route: 042
  2. OXALIPLATIN [Suspect]
     Active Substance: OXALIPLATIN
     Indication: Bladder adenocarcinoma stage unspecified
     Dosage: 85 MILLIGRAM/SQ. METER (ON DAY 1)
     Route: 042
  3. LEUCOVORIN [Concomitant]
     Active Substance: LEUCOVORIN\LEUCOVORIN CALCIUM
     Dosage: 400 MILLIGRAM/SQ. METER (ON DAY 1)
     Route: 042
  4. LEUCOVORIN [Concomitant]
     Active Substance: LEUCOVORIN\LEUCOVORIN CALCIUM
  5. FLUOROURACIL [Concomitant]
     Active Substance: FLUOROURACIL
     Dosage: 400 MILLIGRAM/SQ. METER (ON DAY 1)
     Route: 040
  6. FLUOROURACIL [Concomitant]
     Active Substance: FLUOROURACIL
     Dosage: 2400 MILLIGRAM/SQ. METER (TOTAL DOSE CONTINUOUS INFUSION OVER 46 HOURS ON DAYS 1 TO 2)
     Route: 042

REACTIONS (4)
  - Neuropathy peripheral [Unknown]
  - Toxicity to various agents [Unknown]
  - Vomiting [Unknown]
  - Nausea [Unknown]
